FAERS Safety Report 7962307-0 (Version None)
Quarter: 2011Q4

REPORT INFORMATION
  Report Type: 
  Country: None (occurrence: None)
  Receive Date: 20111207
  Receipt Date: 20111202
  Transmission Date: 20120403
  Serious: Yes (Other)
  Sender: FDA-Public Use
  Company Number: PHHY2011CA106245

PATIENT
  Sex: Female

DRUGS (3)
  1. ZOLEDRONOC ACID [Suspect]
     Indication: OSTEOPOROSIS
     Dosage: UNK UKN, UNK
     Route: 042
     Dates: start: 20101206
  2. LUCENTIS [Concomitant]
     Dosage: UNK UKN, UNK
  3. VISUALINE [Concomitant]
     Dosage: UNK UKN, UNK

REACTIONS (2)
  - VISUAL ACUITY REDUCED [None]
  - EYE HAEMORRHAGE [None]
